FAERS Safety Report 6906525-9 (Version None)
Quarter: 2010Q3

REPORT INFORMATION
  Report Type: 
  Country: None (occurrence: None)
  Receive Date: 20100708
  Receipt Date: 20100426
  Transmission Date: 20110219
  Serious: Yes (Other)
  Sender: FDA-Public Use
  Company Number: 2010053283

PATIENT
  Age: 67 Year
  Sex: Female
  Weight: 48.5 kg

DRUGS (3)
  1. CHANTIX [Suspect]
     Indication: SMOKING CESSATION THERAPY
     Dosage: 1.0.5 MG, 1X/DA, 1 MG 2X/DAY
     Dates: start: 20100412, end: 20100401
  2. CHANTIX [Suspect]
     Indication: SMOKING CESSATION THERAPY
     Dosage: 1.0.5 MG, 1X/DA, 1 MG 2X/DAY
     Dates: start: 20100401, end: 20100424
  3. LOVASTATIN [Suspect]

REACTIONS (2)
  - RASH [None]
  - URTICARIA [None]
